FAERS Safety Report 12516960 (Version 1)
Quarter: 2016Q2

REPORT INFORMATION
  Report Type: Spontaneous
  Country: DE (occurrence: DE)
  Receive Date: 20160630
  Receipt Date: 20160630
  Transmission Date: 20160815
  Serious: Yes (Other)
  Sender: FDA-Public Use
  Company Number: DE-MYLANLABS-2016M1026818

PATIENT

DRUGS (1)
  1. LAMOTRIGINE. [Suspect]
     Active Substance: LAMOTRIGINE
     Indication: EPILEPSY
     Dosage: 600 [MG/D ]/ DOSAGE IN THE BEGINNING 4 X 150 MG/D, 12 WEEKS AFTER DELIVERY REDUCTION TO 575 MG/D
     Route: 063

REACTIONS (5)
  - Anticonvulsant drug level above therapeutic [Recovered/Resolved]
  - Eczema [Unknown]
  - Hepatic enzyme increased [Unknown]
  - Exposure during breast feeding [Unknown]
  - Abdominal pain [Unknown]
